FAERS Safety Report 6106734-5 (Version None)
Quarter: 2009Q1

REPORT INFORMATION
  Report Type: 
  Country: None (occurrence: None)
  Receive Date: 20090304
  Receipt Date: 20090223
  Transmission Date: 20090719
  Serious: Yes (Other)
  Sender: FDA-Public Use
  Company Number: CHPA2009CA05147

PATIENT
  Age: 41 Year
  Sex: Female
  Weight: 74.8 kg

DRUGS (1)
  1. HABITROL                  (NICOTINE) TRANS-THERAPEUTIC-SYSTEM [Suspect]
     Indication: SMOKING CESSATION THERAPY
     Dosage: 14 MG, QD, TRANSDERMAL
     Route: 062
     Dates: start: 20070101, end: 20070101

REACTIONS (3)
  - APPLICATION SITE ANAESTHESIA [None]
  - DEPENDENCE [None]
  - MYOCARDIAL INFARCTION [None]
